FAERS Safety Report 4318364-6 (Version None)
Quarter: 2004Q1

REPORT INFORMATION
  Report Type: 
  Country: None (occurrence: None)
  Receive Date: 20040315
  Receipt Date: 20031201
  Transmission Date: 20041129
  Serious: No
  Sender: FDA-Public Use
  Company Number: 2003188622US

PATIENT
  Age: 41 Year
  Sex: Female

DRUGS (2)
  1. BEXTRA [Suspect]
     Indication: COCCYDYNIA
     Dosage: 10 MG,
     Dates: start: 20030101, end: 20030101
  2. ADVIL [Concomitant]

REACTIONS (1)
  - ABNORMAL BEHAVIOUR [None]
